FAERS Safety Report 9223540 (Version 1)
Quarter: 2013Q2

REPORT INFORMATION
  Report Type: Spontaneous
  Country: CA (occurrence: CA)
  Receive Date: 20130410
  Receipt Date: 20130410
  Transmission Date: 20140414
  Serious: Yes (Death, Hospitalization)
  Sender: FDA-Public Use
  Company Number: CA-GLAXOSMITHKLINE-A1004120A

PATIENT
  Age: 56 Year
  Sex: Female

DRUGS (6)
  1. VOTRIENT [Suspect]
     Indication: SARCOMA
     Dosage: 800MG PER DAY
     Route: 048
     Dates: start: 20121124, end: 201301
  2. METHADONE [Concomitant]
  3. VITAMIN B12 [Concomitant]
  4. LYRICA [Concomitant]
  5. FLUOXETINE [Concomitant]
     Dosage: 20MG PER DAY
  6. HALOPERIDOL [Concomitant]
     Dosage: 1MG AS REQUIRED

REACTIONS (5)
  - Swelling face [Not Recovered/Not Resolved]
  - Abdominal distension [Unknown]
  - Retching [Unknown]
  - Vomiting [Unknown]
  - Death [Fatal]
